FAERS Safety Report 9558888 (Version 1)
Quarter: 2013Q3

REPORT INFORMATION
  Report Type: Report from Study
  Country: US (occurrence: US)
  Receive Date: 20130927
  Receipt Date: 20130927
  Transmission Date: 20140515
  Serious: Yes (Hospitalization)
  Sender: FDA-Public Use
  Company Number: US-PFIZER INC-2013274178

PATIENT
  Age: 67 Year
  Sex: Male
  Weight: 94.3 kg

DRUGS (18)
  1. BLINDED CELECOXIB [Suspect]
     Indication: NON-SMALL CELL LUNG CANCER
     Dosage: CYCLES 1-6 AND 7+: 400MG, BID DAYS 1 TO 21.
     Route: 048
     Dates: start: 20130822
  2. BLINDED PLACEBO [Suspect]
     Indication: NON-SMALL CELL LUNG CANCER
     Dosage: CYCLES 1-6 AND 7+: 400MG, BID DAYS 1 TO 21.
     Route: 048
     Dates: start: 20130822
  3. CARBOPLATIN [Suspect]
     Indication: NON-SMALL CELL LUNG CANCER
     Dosage: AUC WAS 5.5 IV DAY 1 (AUC WAS 5.0 WITH PRIOR CHEST RADIOTHERAPHY)
     Route: 042
     Dates: start: 20130822
  4. GEMCITABINE HYDROCHLORIDE [Suspect]
     Indication: NON-SMALL CELL LUNG CANCER
     Dosage: 1000 MG/M2, DAYS 1 AND 8
     Route: 042
     Dates: start: 20130822
  5. ALBUTEROL [Concomitant]
     Dosage: UNK
  6. MORPHINE SULFATE [Concomitant]
     Dosage: UNK
  7. ONDANSETRON [Concomitant]
     Dosage: UNK
  8. RANITIDINE HYDROCHLORIDE [Concomitant]
     Dosage: UNK
  9. TAMSULOSIN [Concomitant]
     Dosage: UNK
  10. CITALOPRAM [Concomitant]
     Dosage: UNK
  11. DOCUSATE [Concomitant]
     Dosage: UNK
  12. FENOFIBRATE [Concomitant]
     Dosage: UNK
  13. LEVETIRACETAM [Concomitant]
     Dosage: UNK
  14. LIDOCAINE HYDROCHLORIDE [Concomitant]
     Dosage: 2 % VISCOUS LIQUID, UNK
  15. METFORMIN [Concomitant]
     Dosage: UNK
  16. PRAVASTATIN [Concomitant]
     Dosage: UNK
  17. PROCHLORPERAZINE MALEATE [Concomitant]
     Dosage: UNK
  18. SENNOSIDES [Concomitant]
     Dosage: UNK

REACTIONS (2)
  - Pyrexia [Recovered/Resolved]
  - Pleural effusion [Recovered/Resolved]
